FAERS Safety Report 8967256 (Version 2)
Quarter: 2013Q4

REPORT INFORMATION
  Report Type: Spontaneous
  Country: BR (occurrence: BR)
  Receive Date: 20121217
  Receipt Date: 20131017
  Transmission Date: 20140711
  Serious: Yes (Hospitalization)
  Sender: FDA-Public Use
  Company Number: BR-JNJFOC-20121204162

PATIENT
  Sex: Female
  Weight: 39 kg

DRUGS (18)
  1. REMICADE [Suspect]
     Indication: RHEUMATOID ARTHRITIS
     Route: 042
     Dates: start: 20121122
  2. REMICADE [Suspect]
     Indication: RHEUMATOID ARTHRITIS
     Route: 042
     Dates: start: 20120614
  3. REMICADE [Suspect]
     Indication: CROHN^S DISEASE
     Route: 042
     Dates: start: 20121122
  4. REMICADE [Suspect]
     Indication: CROHN^S DISEASE
     Route: 042
     Dates: start: 20120614
  5. ANTIBIOTICS UNSPECIFIED [Suspect]
     Indication: GASTROINTESTINAL INFECTION
     Route: 065
     Dates: start: 201209
  6. PREDNISONE [Suspect]
     Indication: RHEUMATOID ARTHRITIS
     Route: 065
  7. PREDNISONE [Suspect]
     Indication: CROHN^S DISEASE
     Route: 065
  8. GLUCOSAMINE [Concomitant]
     Indication: COLON OPERATION
     Route: 065
  9. AZATHIOPRINE [Concomitant]
     Indication: RHEUMATOID ARTHRITIS
     Route: 065
  10. AZATHIOPRINE [Concomitant]
     Indication: CROHN^S DISEASE
     Route: 065
  11. PURAN T4 [Concomitant]
     Indication: HYPOTHYROIDISM
     Route: 065
  12. CALCIUM CARBONATE [Concomitant]
     Indication: OSTEOPOROSIS
     Route: 065
  13. ALENDRONATE SODIUM [Concomitant]
     Indication: OSTEOPOROSIS
     Route: 065
  14. ADDERA D3 [Concomitant]
     Indication: HYPOTHYROIDISM
     Route: 065
  15. ADDERA D3 [Concomitant]
     Indication: OSTEOPOROSIS
     Route: 065
  16. CLOXAZOLAM [Concomitant]
     Indication: ANXIETY
     Route: 065
  17. ALL OTHER THERAPEUTIC DRUG [Concomitant]
     Indication: SYNOVIAL DISORDER
     Route: 065
  18. OMEGA 3 [Concomitant]
     Route: 065

REACTIONS (8)
  - Gastrointestinal infection [Recovered/Resolved]
  - Irritable bowel syndrome [Not Recovered/Not Resolved]
  - Fungal infection [Not Recovered/Not Resolved]
  - Dry skin [Not Recovered/Not Resolved]
  - Weight decreased [Not Recovered/Not Resolved]
  - Alopecia [Not Recovered/Not Resolved]
  - Pain [Recovered/Resolved]
  - Headache [Unknown]
